FAERS Safety Report 10459482 (Version 1)
Quarter: 2014Q3

REPORT INFORMATION
  Report Type: Spontaneous
  Country: US (occurrence: None)
  Receive Date: 20140915
  Receipt Date: 20140915
  Transmission Date: 20150326
  Serious: Yes (Other)
  Sender: FDA-Public Use
  Company Number: 2014JUB00123

PATIENT
  Age: 83 Year
  Sex: Male
  Weight: 91.8 kg

DRUGS (6)
  1. ALENDRONATE SODIUM. [Suspect]
     Active Substance: ALENDRONATE SODIUM
     Indication: OSTEOPOROSIS
     Dosage: 70MG, 1X.WEEK, ORAL
     Route: 048
     Dates: end: 20140805
  2. ALENDRONATE SODIUM. [Suspect]
     Active Substance: ALENDRONATE SODIUM
     Indication: OSTEOPOROSIS
  3. AMLODIPINE BESYLATE. [Concomitant]
     Active Substance: AMLODIPINE BESYLATE
  4. CALCIUM WITH VITAMIN D [Concomitant]
     Active Substance: CALCIUM\VITAMIN D
  5. VITAMIN D [Concomitant]
     Active Substance: CHOLECALCIFEROL
  6. CALCIUM [Concomitant]
     Active Substance: CALCIUM

REACTIONS (13)
  - Myalgia [None]
  - Rib fracture [None]
  - Pain [None]
  - Jaw disorder [None]
  - Chondropathy [None]
  - Post procedural haemorrhage [None]
  - Arthralgia [None]
  - Drug ineffective [None]
  - Pain in extremity [None]
  - Gait disturbance [None]
  - Ankle fracture [None]
  - Hypoaesthesia [None]
  - Dental caries [None]

NARRATIVE: CASE EVENT DATE: 2003
